FAERS Safety Report 19900736 (Version 1)
Quarter: 2021Q3

REPORT INFORMATION
  Report Type: Spontaneous
  Country: US (occurrence: US)
  Receive Date: 20210930
  Receipt Date: 20210930
  Transmission Date: 20211014
  Serious: No
  Sender: FDA-Public Use
  Company Number: US-GLAXOSMITHKLINE-USCH2021066214

PATIENT
  Age: 68 Year
  Sex: Female

DRUGS (1)
  1. VOLTAREN ARTHRITIS PAIN [Suspect]
     Active Substance: DICLOFENAC SODIUM
     Indication: PAIN
     Dosage: UNK
     Dates: start: 20210922

REACTIONS (4)
  - Product use in unapproved indication [Unknown]
  - Gait inability [Unknown]
  - Drug effective for unapproved indication [Unknown]
  - Dizziness [Unknown]

NARRATIVE: CASE EVENT DATE: 20210923
